FAERS Safety Report 16564365 (Version 1)
Quarter: 2019Q3

REPORT INFORMATION
  Report Type: Spontaneous
  Country: DE (occurrence: DE)
  Receive Date: 20190712
  Receipt Date: 20190712
  Transmission Date: 20191004
  Serious: Yes (Hospitalization)
  Sender: FDA-Public Use
  Company Number: DE-ACCORD-138013

PATIENT
  Age: 60 Year
  Sex: Male

DRUGS (11)
  1. OXALIPLATIN. [Suspect]
     Active Substance: OXALIPLATIN
     Indication: PRODUCT USED FOR UNKNOWN INDICATION
     Dosage: NK MG, MOST RECENTLY ON 20.10.2017
  2. FOLINIC ACID [Suspect]
     Active Substance: LEUCOVORIN
     Indication: PRODUCT USED FOR UNKNOWN INDICATION
     Dosage: NK MG, MOST RECENTLY ON 20.10.2017
  3. NAC [Concomitant]
     Active Substance: ACETYLCYSTEINE
     Dosage: 600 MG, 1-0-0-0, STRENGTH: 600
  4. TORASEMID-1A PHARMA [Concomitant]
     Active Substance: TORSEMIDE
     Dosage: 10 MG, 1-0-0-0, STRENGTH: 10 MG
  5. FLUOROURACIL. [Suspect]
     Active Substance: FLUOROURACIL
     Indication: PRODUCT USED FOR UNKNOWN INDICATION
     Dosage: NK MG, MOST RECENTLY ON 20.10.2017
  6. METOBETA [Concomitant]
     Active Substance: METOPROLOL TARTRATE
     Dosage: 50 MG, 1-0-1-0, STRENGTH: 50 MG
  7. CANDESARTAN/CANDESARTAN CILEXETIL [Concomitant]
     Dosage: 16 MG, 1-0-0-0
  8. MOXONIDINE HEUMANN [Concomitant]
     Dosage: 0.30 MG, 1-01-0, STRENGTH: 0.3 MG HEUNET
  9. AMLODIPINE [Concomitant]
     Active Substance: AMLODIPINE BESYLATE
     Dosage: 10 MG, 0-0-1-0
  10. TRI-NORMIN [Concomitant]
     Active Substance: ATENOLOL\CHLORTHALIDONE\HYDRALAZINE HYDROCHLORIDE
     Dosage: 25/25/12.5 MG, 1-0-0-0, STRENGTH: 25 MG
  11. CLEXANE [Concomitant]
     Active Substance: ENOXAPARIN SODIUM
     Dosage: 100 MG, 1-0-0-0
     Route: 058

REACTIONS (1)
  - Constipation [Unknown]

NARRATIVE: CASE EVENT DATE: 20171019
